FAERS Safety Report 4957032-4 (Version None)
Quarter: 2006Q1

REPORT INFORMATION
  Report Type: 
  Country: None (occurrence: None)
  Receive Date: 20060329
  Receipt Date: 20060320
  Transmission Date: 20060701
  Serious: Yes (Other)
  Sender: FDA-Public Use
  Company Number: JP-AVENTIS-200610919JP

PATIENT
  Age: 26 Year
  Sex: Female

DRUGS (4)
  1. ALLEGRA [Suspect]
     Indication: RHINITIS ALLERGIC
     Dosage: DOSE: 1 TABLET
     Dates: start: 20060320, end: 20060320
  2. FLOMOX [Concomitant]
     Indication: OTITIS MEDIA
     Dates: start: 20060310
  3. LOXONIN [Concomitant]
     Indication: OTITIS MEDIA
     Dates: start: 20060310
  4. POLARAMINE [Concomitant]
     Indication: OTITIS MEDIA
     Dates: start: 20060310

REACTIONS (1)
  - SHOCK [None]
